FAERS Safety Report 21506251 (Version 1)
Quarter: 2022Q4

REPORT INFORMATION
  Report Type: Other
  Country: US (occurrence: None)
  Receive Date: 20221026
  Receipt Date: 20221026
  Transmission Date: 20230112
  Serious: Yes (Death)
  Sender: FDA-Public Use
  Company Number: US-ROCHE-3206610

PATIENT
  Age: 79 Year
  Sex: Female
  Weight: 54.2 kg

DRUGS (2)
  1. AVASTIN [Suspect]
     Active Substance: BEVACIZUMAB
     Indication: Pancreatic carcinoma
     Dosage: INFUSE 10 MG/KG INTRAVENOUSLY OVER 90 MINUTES EVERY 14 DAYS (PATIENT WEIGHT 54.2 KG), FORMULATION: V
     Route: 042
  2. AVASTIN [Suspect]
     Active Substance: BEVACIZUMAB
     Indication: Neoplasm malignant
     Dosage: INFUSE 10 MG/KG INTRAVENOUSLY OVER 90 MINUTES EVERY 14 DAYS (PATIENT WEIGHT 54.2 KG), FORMULATION: V
     Route: 042

REACTIONS (2)
  - Death [Fatal]
  - Off label use [Unknown]
